FAERS Safety Report 14126389 (Version 1)
Quarter: 2017Q4

REPORT INFORMATION
  Report Type: Spontaneous
  Country: US (occurrence: US)
  Receive Date: 20171025
  Receipt Date: 20171025
  Transmission Date: 20180321
  Serious: No
  Sender: FDA-Public Use
  Company Number: US-NEUROCRINE BIOSCIENCES INC.-2017NBI01082

PATIENT
  Sex: Male

DRUGS (4)
  1. CLOZARIL [Concomitant]
     Active Substance: CLOZAPINE
  2. OLANZAPINE. [Concomitant]
     Active Substance: OLANZAPINE
  3. BENZODIAZEPINE [Concomitant]
     Active Substance: BENZODIAZEPINE
  4. INGREZZA [Suspect]
     Active Substance: VALBENAZINE
     Indication: TARDIVE DYSKINESIA
     Route: 048
     Dates: start: 2017, end: 2017

REACTIONS (2)
  - Drooling [Unknown]
  - Somnolence [Unknown]

NARRATIVE: CASE EVENT DATE: 2017
